FAERS Safety Report 9797925 (Version 1)
Quarter: 2014Q1

REPORT INFORMATION
  Report Type: Spontaneous
  Country: US (occurrence: US)
  Receive Date: 20140106
  Receipt Date: 20140106
  Transmission Date: 20141002
  Serious: No
  Sender: FDA-Public Use
  Company Number: US-B.I. PHARMACEUTICALS,INC./RIDGEFIELD-2013-BI-43810BP

PATIENT
  Sex: Male
  Weight: 45 kg

DRUGS (1)
  1. COMBIVENT [Suspect]
     Indication: EMPHYSEMA
     Dosage: STRENGTH: 18 MCG / 103 MCG; DAILY DOSE: 144MCG/824MCG
     Route: 055
     Dates: start: 1996, end: 201303

REACTIONS (3)
  - Lung infection [Recovered/Resolved]
  - Emphysema [Not Recovered/Not Resolved]
  - Abnormal loss of weight [Not Recovered/Not Resolved]
